FAERS Safety Report 9850132 (Version 1)
Quarter: 2014Q1

REPORT INFORMATION
  Report Type: Spontaneous
  Country: CA (occurrence: CA)
  Receive Date: 20140128
  Receipt Date: 20140128
  Transmission Date: 20141002
  Serious: Yes (Death)
  Sender: FDA-Public Use
  Company Number: CA-PFIZER INC-2014022633

PATIENT
  Age: 6 Decade
  Sex: 0

DRUGS (1)
  1. XALKORI [Suspect]
     Indication: ANAPLASTIC LYMPHOMA KINASE GENE MUTATION
     Dosage: UNK

REACTIONS (1)
  - Death [Fatal]
